FAERS Safety Report 10846883 (Version 1)
Quarter: 2015Q1

REPORT INFORMATION
  Report Type: Spontaneous
  Country: FR (occurrence: US)
  Receive Date: 20150220
  Receipt Date: 20150220
  Transmission Date: 20150721
  Serious: Yes (Other)
  Sender: FDA-Public Use
  Company Number: US-CELGENE-163-21880-10070684

PATIENT

DRUGS (10)
  1. REVLIMID [Suspect]
     Active Substance: LENALIDOMIDE
     Indication: PLASMA CELL MYELOMA
     Dosage: 25 MILLIGRAM
     Route: 048
  2. DEXAMETHASONE. [Suspect]
     Active Substance: DEXAMETHASONE
     Route: 048
  3. ELOTUZUMAB [Suspect]
     Active Substance: ELOTUZUMAB
     Route: 041
  4. ACETAMINOPHEN. [Concomitant]
     Active Substance: ACETAMINOPHEN
     Indication: PRODUCT USED FOR UNKNOWN INDICATION
     Route: 065
  5. DEXAMETHASONE. [Suspect]
     Active Substance: DEXAMETHASONE
     Indication: PLASMA CELL MYELOMA
     Route: 048
  6. ELOTUZUMAB [Suspect]
     Active Substance: ELOTUZUMAB
     Dosage: 5, 10 AND 20 MG/KG
     Route: 041
  7. RANITIDINE [Concomitant]
     Active Substance: RANITIDINE\RANITIDINE HYDROCHLORIDE
     Indication: PRODUCT USED FOR UNKNOWN INDICATION
     Route: 065
  8. ELOTUZUMAB [Suspect]
     Active Substance: ELOTUZUMAB
     Indication: PLASMA CELL MYELOMA
     Dosage: 5, 10 AND 20 MG/KG
     Route: 041
  9. METHYLPREDNISOLONE. [Concomitant]
     Active Substance: METHYLPREDNISOLONE
     Indication: PRODUCT USED FOR UNKNOWN INDICATION
     Route: 065
  10. DIPHENHYDRAMINE [Concomitant]
     Active Substance: DIPHENHYDRAMINE
     Indication: PRODUCT USED FOR UNKNOWN INDICATION
     Route: 065

REACTIONS (34)
  - Enteritis [Unknown]
  - Pneumonia [Unknown]
  - Dizziness [Unknown]
  - Hyperhidrosis [Unknown]
  - Upper respiratory tract infection [Unknown]
  - Lung disorder [Unknown]
  - Cough [Unknown]
  - Back pain [Unknown]
  - Rash [Unknown]
  - Oedema peripheral [Unknown]
  - Nausea [Unknown]
  - Muscle spasms [Unknown]
  - Febrile neutropenia [Unknown]
  - Diarrhoea [Unknown]
  - Hypokalaemia [Unknown]
  - Fatigue [Unknown]
  - Anaphylactic reaction [Unknown]
  - Arthralgia [Unknown]
  - Anaemia [Unknown]
  - Stridor [Unknown]
  - Diverticular perforation [Unknown]
  - Chills [Unknown]
  - Plasma cell myeloma [Unknown]
  - Headache [Unknown]
  - Atrial fibrillation [Unknown]
  - Bradycardia [Unknown]
  - Pyrexia [Unknown]
  - Asthenia [Unknown]
  - Dyspnoea [Unknown]
  - Leukopenia [Unknown]
  - Sepsis [Unknown]
  - Constipation [Unknown]
  - Hyperglycaemia [Unknown]
  - Insomnia [Unknown]
